FAERS Safety Report 8092949-6 (Version None)
Quarter: 2012Q1

REPORT INFORMATION
  Report Type: 
  Country: None (occurrence: None)
  Receive Date: 20120125
  Receipt Date: 20120119
  Transmission Date: 20120608
  Serious: Yes (Hospitalization)
  Sender: FDA-Public Use
  Company Number: US-007532

PATIENT
  Age: 45 Year
  Sex: Female

DRUGS (8)
  1. CRANBERRY /01512301/ [Concomitant]
  2. TRANEXAMIC ACID [Suspect]
     Indication: MENORRHAGIA
     Dosage: (1300 MG TID, FOR 5 DAYS ORAL)
     Route: 048
     Dates: start: 20111201, end: 20111201
  3. IRON [Concomitant]
  4. CALCIUM WITH VITAMIN D /01233101/ [Concomitant]
  5. L-LYSINE /00919901/ [Concomitant]
  6. GELATIN [Concomitant]
  7. COUMADIN [Suspect]
     Indication: ANTICOAGULATION DRUG LEVEL
     Dates: start: 20111201, end: 20111201
  8. LORATADINE [Concomitant]

REACTIONS (4)
  - PULMONARY EMBOLISM [None]
  - DRUG INEFFECTIVE [None]
  - DEEP VEIN THROMBOSIS [None]
  - RETROPERITONEAL HAEMATOMA [None]
